FAERS Safety Report 19772033 (Version 1)
Quarter: 2021Q3

REPORT INFORMATION
  Report Type: Spontaneous
  Country: PL (occurrence: PL)
  Receive Date: 20210901
  Receipt Date: 20210901
  Transmission Date: 20211014
  Serious: Yes (Other)
  Sender: FDA-Public Use
  Company Number: PL-AMGEN-POLSP2021133521

PATIENT
  Age: 63 Year
  Sex: Male

DRUGS (4)
  1. 5 FU [Suspect]
     Active Substance: FLUOROURACIL
     Indication: RECTAL ADENOCARCINOMA
     Dosage: UNK
     Route: 065
     Dates: start: 201908
  2. LEUCOVORIN [FOLINIC ACID] [Suspect]
     Active Substance: LEUCOVORIN
     Indication: RECTAL ADENOCARCINOMA
     Dosage: UNK
     Route: 065
     Dates: start: 201908
  3. OXALIPLATIN. [Suspect]
     Active Substance: OXALIPLATIN
     Indication: RECTAL ADENOCARCINOMA
     Dosage: UNK
     Route: 065
     Dates: start: 201908
  4. PANITUMUMAB [Suspect]
     Active Substance: PANITUMUMAB
     Indication: RECTAL ADENOCARCINOMA
     Dosage: UNK
     Route: 065
     Dates: start: 201908

REACTIONS (8)
  - Thrombocytopenia [Unknown]
  - Neutropenia [Unknown]
  - Hypertransaminasaemia [Unknown]
  - Anaemia [Unknown]
  - Rash maculo-papular [Recovering/Resolving]
  - Leukocytosis [Unknown]
  - Hypomagnesaemia [Unknown]
  - Hypercreatininaemia [Unknown]

NARRATIVE: CASE EVENT DATE: 202005
